FAERS Safety Report 4529330-X (Version None)
Quarter: 2004Q4

REPORT INFORMATION
  Report Type: 
  Country: None (occurrence: None)
  Receive Date: 20041214
  Receipt Date: 20041201
  Transmission Date: 20050328
  Serious: Yes (Death, Life-Threatening, Other)
  Sender: FDA-Public Use
  Company Number: 2004103499

PATIENT
  Age: 71 Year
  Sex: Male

DRUGS (5)
  1. ATORVASTATIN (ATORVASTATIN) [Suspect]
     Indication: BLOOD CHOLESTEROL INCREASED
     Dosage: 20 MG (20 MG, 1 IN 1 D), ORAL
     Route: 048
     Dates: start: 20040504, end: 20040618
  2. LEVOTHYROXINE SODIUM [Concomitant]
  3. SOTALOL HCL [Concomitant]
  4. ASPIRIN [Concomitant]
  5. ARTHROTEC [Concomitant]

REACTIONS (10)
  - ASTHENIA [None]
  - CHROMATURIA [None]
  - FATIGUE [None]
  - HEPATIC FUNCTION ABNORMAL [None]
  - JAUNDICE [None]
  - MALAISE [None]
  - NAUSEA [None]
  - RENAL IMPAIRMENT [None]
  - RHABDOMYOLYSIS [None]
  - VOMITING [None]
